FAERS Safety Report 10100972 (Version 2)
Quarter: 2014Q2

REPORT INFORMATION
  Report Type: Spontaneous
  Country: US (occurrence: US)
  Receive Date: 20140424
  Receipt Date: 20140424
  Transmission Date: 20141212
  Serious: Yes (Hospitalization, Other)
  Sender: FDA-Public Use
  Company Number: US-AMGEN-USASP2012052904

PATIENT
  Age: 50 Year
  Sex: Female

DRUGS (2)
  1. ENBREL [Suspect]
     Indication: RHEUMATOID ARTHRITIS
     Dosage: 50 MG, QWK
     Route: 058
     Dates: start: 20120406, end: 201301
  2. ARAVA [Concomitant]
     Dosage: 20 MG, DAILY ABOUT 14 TO 15 YEARS OR LONGER

REACTIONS (9)
  - Nerve compression [Not Recovered/Not Resolved]
  - Joint destruction [Recovered/Resolved]
  - Rheumatoid arthritis [Not Recovered/Not Resolved]
  - Tooth abscess [Recovered/Resolved]
  - Rheumatoid lung [Not Recovered/Not Resolved]
  - Arthralgia [Recovered/Resolved]
  - Drug effect incomplete [Not Recovered/Not Resolved]
  - Drug ineffective [Not Recovered/Not Resolved]
  - Bronchitis [Not Recovered/Not Resolved]
